FAERS Safety Report 5257437-0 (Version None)
Quarter: 2007Q1

REPORT INFORMATION
  Report Type: 
  Country: None (occurrence: None)
  Receive Date: 20070307
  Receipt Date: 20070102
  Transmission Date: 20070707
  Serious: No
  Sender: FDA-Public Use
  Company Number: 36503

PATIENT
  Age: 54 Year
  Sex: Female
  Weight: 49.1 kg

DRUGS (3)
  1. REQUIP [Suspect]
     Indication: RESTLESS LEGS SYNDROME
     Dosage: 1.5MG UNKNOWN
     Route: 048
     Dates: start: 20060612
  2. TEMAZEPAM [Concomitant]
  3. CLONOPIN [Concomitant]

REACTIONS (2)
  - EXCESSIVE SEXUAL FANTASIES [None]
  - HYPERSEXUALITY [None]
